FAERS Safety Report 14825277 (Version 1)
Quarter: 2018Q2

REPORT INFORMATION
  Report Type: Spontaneous
  Country: MX (occurrence: MX)
  Receive Date: 20180430
  Receipt Date: 20180430
  Transmission Date: 20180711
  Serious: Yes (Other)
  Sender: FDA-Public Use
  Company Number: MX-TEVA-2018-MX-887405

PATIENT
  Age: 26 Year
  Sex: Female
  Weight: 55 kg

DRUGS (1)
  1. DIPRIVAN [Suspect]
     Active Substance: PROPOFOL
     Indication: SEDATION
     Dosage: SINGLE-DOSE
     Route: 042
     Dates: start: 20180405, end: 20180405

REACTIONS (1)
  - Rash erythematous [Recovered/Resolved]

NARRATIVE: CASE EVENT DATE: 20180405
